FAERS Safety Report 6195677-7 (Version None)
Quarter: 2009Q2

REPORT INFORMATION
  Report Type: 
  Country: None (occurrence: None)
  Receive Date: 20090519
  Receipt Date: 20090514
  Transmission Date: 20091009
  Serious: Yes (Hospitalization, Other)
  Sender: FDA-Public Use
  Company Number: US-ABBOTT-09P-163-0573408-00

PATIENT
  Sex: Female
  Weight: 69.462 kg

DRUGS (9)
  1. HUMIRA [Suspect]
     Indication: RHEUMATOID ARTHRITIS
     Route: 058
     Dates: start: 20090201
  2. TOPROL-XL [Concomitant]
     Indication: BLOOD PRESSURE
     Route: 048
  3. NORVASC [Concomitant]
     Indication: HYPERTENSION
     Route: 048
     Dates: start: 20090312
  4. METOPROLOL PLAIN RELEASE [Concomitant]
     Indication: BLOOD PRESSURE
     Dosage: PT STATES TAKES XL AND PLAIN
     Route: 048
  5. ISOSORBIDE MONONITRATE ER [Concomitant]
     Indication: CARDIAC DISORDER
     Route: 048
  6. LOVASTATIN [Concomitant]
     Indication: BLOOD CHOLESTEROL
     Route: 048
  7. CALCIUM W/D [Concomitant]
     Indication: MINERAL SUPPLEMENTATION
     Dosage: 600/?
     Route: 048
  8. ASPIRIN [Concomitant]
     Indication: CARDIAC DISORDER
     Route: 048
  9. TYLENOL (CAPLET) [Concomitant]
     Indication: RHEUMATOID ARTHRITIS
     Route: 048

REACTIONS (6)
  - ARTERIAL OCCLUSIVE DISEASE [None]
  - ARTHRALGIA [None]
  - CHEST PAIN [None]
  - DRUG INEFFECTIVE [None]
  - JOINT SWELLING [None]
  - PAIN IN JAW [None]
